FAERS Safety Report 9324412 (Version 1)
Quarter: 2013Q2

REPORT INFORMATION
  Report Type: Spontaneous
  Country: US (occurrence: US)
  Receive Date: 20130603
  Receipt Date: 20130603
  Transmission Date: 20140414
  Serious: No
  Sender: FDA-Public Use
  Company Number: US-ASTRAZENECA-2005UW09651

PATIENT
  Age: 67 Year
  Sex: Female

DRUGS (2)
  1. CRESTOR [Suspect]
     Route: 048
  2. NEXIUM [Suspect]
     Route: 048

REACTIONS (4)
  - Pain in extremity [Unknown]
  - Fatigue [Unknown]
  - Abdominal pain upper [Unknown]
  - Drug dose omission [Unknown]
